FAERS Safety Report 7640339-X (Version None)
Quarter: 2011Q3

REPORT INFORMATION
  Report Type: 
  Country: None (occurrence: None)
  Receive Date: 20110728
  Receipt Date: 20110725
  Transmission Date: 20111222
  Serious: Yes (Life-Threatening, Hospitalization)
  Sender: FDA-Public Use
  Company Number: CA-BAYER-2011-064399

PATIENT
  Age: 62 Year
  Sex: Male
  Weight: 101 kg

DRUGS (14)
  1. ATIVAN [Concomitant]
     Route: 048
  2. APO K [Concomitant]
     Route: 048
  3. DIOVAN [Concomitant]
     Route: 048
  4. FERROUS SULFATE TAB [Concomitant]
  5. LASIX [Concomitant]
     Route: 048
  6. AVELOX [Suspect]
     Dosage: 400 MG, QD
     Route: 048
  7. BISOPROLOL FUMARATE [Concomitant]
     Route: 048
  8. DILTIAZEM [Concomitant]
     Route: 048
  9. PREDNISONE [Concomitant]
     Route: 048
  10. ASPIRIN [Concomitant]
     Route: 048
  11. NORVASC [Concomitant]
     Route: 048
  12. PANTOPRAZOLE SODIUM [Concomitant]
     Route: 048
  13. LIPITOR [Concomitant]
     Route: 048
  14. BRICANYL [Concomitant]
     Dosage: 0.5 MG, UNK
     Route: 045

REACTIONS (2)
  - HYPONATRAEMIA [None]
  - GENERALISED OEDEMA [None]
